FAERS Safety Report 7672353-2 (Version None)
Quarter: 2011Q3

REPORT INFORMATION
  Report Type: 
  Country: None (occurrence: None)
  Receive Date: 20110804
  Receipt Date: 20110726
  Transmission Date: 20111222
  Serious: Yes (Death, Hospitalization, Other)
  Sender: FDA-Public Use
  Company Number: 863697

PATIENT
  Age: 70 Year
  Sex: Male

DRUGS (6)
  1. CORTICOSTEROIDS [Concomitant]
  2. SULFASALAZINE [Concomitant]
  3. CODEINE SULFATE [Concomitant]
  4. ACETAMINOPHEN [Concomitant]
  5. METHOTREXATE [Suspect]
     Indication: RHEUMATOID ARTHRITIS
     Dosage: 10, 20 MG MILLIGRAM, 1 WEEK, ORAL
     Route: 048
  6. ARAVA [Suspect]
     Indication: RHEUMATOID ARTHRITIS
     Dosage: 10 MG, MILLIGRAM, ORAL
     Route: 048

REACTIONS (8)
  - OFF LABEL USE [None]
  - DRUG INTERACTION [None]
  - INTERSTITIAL LUNG DISEASE [None]
  - RESPIRATORY DISTRESS [None]
  - COUGH [None]
  - RESPIRATORY FAILURE [None]
  - PYREXIA [None]
  - FATIGUE [None]
